FAERS Safety Report 15705808 (Version 1)
Quarter: 2018Q4

REPORT INFORMATION
  Report Type: Spontaneous
  Country: US (occurrence: US)
  Receive Date: 20181210
  Receipt Date: 20181210
  Transmission Date: 20190205
  Serious: Yes (Other)
  Sender: FDA-Public Use
  Company Number: US-PFIZER INC-2018490271

PATIENT
  Sex: Male

DRUGS (1)
  1. ROBITUSSIN MAXIMUM STRENGTH NIGHTTIME COUGH DM [Suspect]
     Active Substance: DEXTROMETHORPHAN HYDROBROMIDE\DOXYLAMINE SUCCINATE
     Dosage: UNK, 1X/DAY (IN THE EVENINGS)

REACTIONS (4)
  - Pain [Unknown]
  - Rash generalised [Unknown]
  - Urticaria [Unknown]
  - Pruritus [Unknown]
